FAERS Safety Report 24000515 (Version 1)
Quarter: 2024Q2

REPORT INFORMATION
  Report Type: Spontaneous
  Country: US (occurrence: None)
  Receive Date: 20240621
  Receipt Date: 20240621
  Transmission Date: 20240716
  Serious: Yes (Death)
  Sender: FDA-Public Use
  Company Number: None

PATIENT
  Age: 73 Year
  Sex: Male

DRUGS (1)
  1. LOKELMA [Suspect]
     Active Substance: SODIUM ZIRCONIUM CYCLOSILICATE
     Indication: Hyperkalaemia
     Dosage: FREQUENCY : DAILY;?
     Route: 048
     Dates: start: 20220722, end: 20240401

REACTIONS (6)
  - Cardiac failure congestive [None]
  - Renal failure [None]
  - Blood pressure decreased [None]
  - Shock haemorrhagic [None]
  - Dialysis [None]
  - Intentional dose omission [None]

NARRATIVE: CASE EVENT DATE: 20240601
